FAERS Safety Report 21341448 (Version 2)
Quarter: 2023Q4

REPORT INFORMATION
  Report Type: Other
  Country: US (occurrence: None)
  Receive Date: 20220916
  Receipt Date: 20231103
  Transmission Date: 20240110
  Serious: Yes (Other)
  Sender: FDA-Public Use
  Company Number: US-ROCHE-2399050

PATIENT
  Age: 68 Year
  Sex: Male
  Weight: 123.94 kg

DRUGS (3)
  1. RITUXAN [Suspect]
     Active Substance: RITUXIMAB
     Indication: Myasthenia gravis
     Dosage: DATE OF TREATMENT: 20/JUN/2017, 11/DEC/2017, 21/MAR/2018, 06/JUN/2018, 13/JUN/2018, 15/JUN/2018, 11/
     Route: 041
     Dates: start: 20160722
  2. RITUXAN [Suspect]
     Active Substance: RITUXIMAB
     Indication: Myasthenia gravis
  3. UNSPECIFIED INGREDIENT [Concomitant]
     Active Substance: UNSPECIFIED INGREDIENT

REACTIONS (6)
  - Pneumonia [Unknown]
  - Eye infection [Unknown]
  - Ear infection [Unknown]
  - Illness [Unknown]
  - Sinusitis [Unknown]
  - Off label use [Unknown]

NARRATIVE: CASE EVENT DATE: 20170324
